FAERS Safety Report 6913040-5 (Version None)
Quarter: 2010Q3

REPORT INFORMATION
  Report Type: 
  Country: None (occurrence: None)
  Receive Date: 20100806
  Receipt Date: 20090619
  Transmission Date: 20110219
  Serious: Yes (Other)
  Sender: FDA-Public Use
  Company Number: US-PFIZER INC-2008092252

PATIENT
  Sex: Female

DRUGS (1)
  1. DETROL LA [Suspect]
     Dates: start: 20080618, end: 20080101

REACTIONS (3)
  - MEDICATION ERROR [None]
  - URINARY RETENTION [None]
  - URINARY TRACT INFECTION [None]
